FAERS Safety Report 7242618-7 (Version None)
Quarter: 2011Q1

REPORT INFORMATION
  Report Type: 
  Country: None (occurrence: None)
  Receive Date: 20110125
  Receipt Date: 20110113
  Transmission Date: 20110831
  Serious: Yes (Congenital Anomaly)
  Sender: FDA-Public Use
  Company Number: US-SHIRE-SPV1-2010-01961

PATIENT

DRUGS (5)
  1. ADDERALL XR 10 [Suspect]
     Indication: ATTENTION DEFICIT/HYPERACTIVITY DISORDER
     Dosage: 25 MG, 1X/DAY:QD
     Route: 064
     Dates: start: 20080926, end: 20100222
  2. LAMICTAL [Suspect]
     Indication: BIPOLAR I DISORDER
     Dosage: 200 MG, 1X/DAY:QD
     Route: 064
     Dates: start: 20090701, end: 20100222
  3. NEURONTIN [Concomitant]
     Indication: ANXIETY
     Dosage: 600 MG, 3X/DAY:TID
     Route: 064
     Dates: end: 20100222
  4. AMBIEN [Concomitant]
     Indication: INSOMNIA
     Dosage: 5 MG, 1X/DAY:QD
     Route: 064
     Dates: start: 20090904, end: 20100222
  5. CHANTIX [Concomitant]
     Indication: SMOKING CESSATION THERAPY
     Dosage: 0.5 MG, 2X/DAY:BID
     Route: 064
     Dates: start: 20100105, end: 20100222

REACTIONS (2)
  - MATERNAL DRUGS AFFECTING FOETUS [None]
  - CLEFT PALATE [None]
